FAERS Safety Report 7407563-2 (Version None)
Quarter: 2011Q2

REPORT INFORMATION
  Report Type: 
  Country: None (occurrence: None)
  Receive Date: 20110406
  Receipt Date: 20110406
  Transmission Date: 20111010
  Serious: No
  Sender: FDA-Public Use
  Company Number: None

PATIENT
  Sex: Male
  Weight: 5.9 kg

DRUGS (2)
  1. CARBOPLATIN [Suspect]
     Dosage: 110 MG
  2. ETOPOSIDE [Suspect]
     Dosage: 72 MG

REACTIONS (8)
  - ERYTHEMA [None]
  - WOUND INFECTION STAPHYLOCOCCAL [None]
  - HYPOTENSION [None]
  - AGITATION [None]
  - PLATELET COUNT DECREASED [None]
  - WHITE BLOOD CELL COUNT DECREASED [None]
  - NEUTROPHIL COUNT DECREASED [None]
  - POSTOPERATIVE WOUND INFECTION [None]
